FAERS Safety Report 8676260 (Version 2)
Quarter: 2013Q4

REPORT INFORMATION
  Report Type: Spontaneous
  Country: US (occurrence: US)
  Receive Date: 20120720
  Receipt Date: 20131003
  Transmission Date: 20140711
  Serious: Yes (Hospitalization, Disabling, Other)
  Sender: FDA-Public Use
  Company Number: US-009507513-1207USA004996

PATIENT
  Age: 48 Year
  Sex: Female

DRUGS (13)
  1. MAXALT [Suspect]
  2. LYRICA [Concomitant]
  3. SAVELLA [Concomitant]
  4. HYDROCODONE [Concomitant]
  5. PRINIVIL [Suspect]
  6. HYDROCHLOROTHIAZIDE [Suspect]
  7. ROPINIROLE [Concomitant]
  8. CEREFOLIN [Concomitant]
  9. LORTAB [Concomitant]
  10. ZANAFLEX [Concomitant]
  11. UBIDECARENONE [Concomitant]
  12. ZEGERID [Concomitant]
  13. FLECTOR [Concomitant]

REACTIONS (10)
  - Systemic lupus erythematosus [Unknown]
  - Vitamin B12 deficiency [Unknown]
  - Fall [Unknown]
  - Fibromyalgia [Unknown]
  - Malaise [Unknown]
  - Pain [Unknown]
  - Depression [Unknown]
  - Fatigue [Unknown]
  - Memory impairment [Unknown]
  - Cognitive disorder [Unknown]
